FAERS Safety Report 10229827 (Version 1)
Quarter: 2014Q2

REPORT INFORMATION
  Report Type: Spontaneous
  Country: US (occurrence: None)
  Receive Date: 20140610
  Receipt Date: 20140610
  Transmission Date: 20141212
  Serious: No
  Sender: FDA-Public Use
  Company Number: None

PATIENT
  Age: 55 Year
  Sex: Male
  Weight: 70.31 kg

DRUGS (6)
  1. TOVIAZ [Suspect]
     Indication: POLLAKIURIA
     Dosage: 8 MG, 1 DAILY OR AS NEEDED, MOUTH
     Route: 048
  2. MULTI VITAMINS [Concomitant]
  3. B-12 + D [Concomitant]
  4. PRAMIPEXOLE [Concomitant]
  5. FOLIC ACID [Concomitant]
  6. ALPRAZOLAM [Concomitant]

REACTIONS (3)
  - Mental impairment [None]
  - Urinary incontinence [None]
  - Unevaluable event [None]
